FAERS Safety Report 7083823-2 (Version None)
Quarter: 2010Q4

REPORT INFORMATION
  Report Type: 
  Country: None (occurrence: None)
  Receive Date: 20101104
  Receipt Date: 20101026
  Transmission Date: 20110411
  Serious: Yes (Hospitalization, Other)
  Sender: FDA-Public Use
  Company Number: US-ACTELION-A-US2009-24244

PATIENT
  Sex: Female

DRUGS (1)
  1. BOSENTAN TABLET UNKNOWN US MG [Suspect]
     Indication: PULMONARY HYPERTENSION
     Route: 048
     Dates: start: 20061211

REACTIONS (7)
  - ARRHYTHMIA [None]
  - CARDIAC DISORDER [None]
  - CARDIAC FAILURE CONGESTIVE [None]
  - CARDIAC PACEMAKER INSERTION [None]
  - CARDIOMYOPATHY [None]
  - DYSPNOEA [None]
  - SICKLE CELL ANAEMIA WITH CRISIS [None]
